FAERS Safety Report 14646953 (Version 1)
Quarter: 2018Q1

REPORT INFORMATION
  Report Type: Spontaneous
  Country: IN (occurrence: IN)
  Receive Date: 20180316
  Receipt Date: 20180316
  Transmission Date: 20180509
  Serious: Yes (Other)
  Sender: FDA-Public Use
  Company Number: PHHY2018IN036324

PATIENT
  Sex: Female

DRUGS (6)
  1. VITAMIN K [Suspect]
     Active Substance: PHYTONADIONE
     Indication: FOETAL EXPOSURE DURING PREGNANCY
     Dosage: 10 MG, QW
     Route: 064
  2. URSODEOXYCHOLIC ACID [Suspect]
     Active Substance: URSODIOL
     Indication: FOETAL EXPOSURE DURING PREGNANCY
     Dosage: 300 MG, BID
     Route: 064
  3. IRON [Suspect]
     Active Substance: IRON
     Indication: FOETAL EXPOSURE DURING PREGNANCY
     Route: 064
  4. METHYLCOBALAMIN. [Suspect]
     Active Substance: METHYLCOBALAMIN
     Indication: FOETAL EXPOSURE DURING PREGNANCY
     Route: 064
  5. FOLIC ACID. [Suspect]
     Active Substance: FOLIC ACID
     Indication: FOETAL EXPOSURE DURING PREGNANCY
     Dosage: 5 MG
     Route: 064
  6. PYRIDOXINE [Suspect]
     Active Substance: PYRIDOXINE
     Indication: FOETAL EXPOSURE DURING PREGNANCY
     Route: 064

REACTIONS (3)
  - Premature baby [Unknown]
  - Low birth weight baby [Unknown]
  - Foetal exposure during pregnancy [Unknown]
